FAERS Safety Report 5782399-7 (Version None)
Quarter: 2008Q2

REPORT INFORMATION
  Report Type: 
  Country: None (occurrence: None)
  Receive Date: 20080623
  Receipt Date: 20080611
  Transmission Date: 20081010
  Serious: Yes (Other)
  Sender: FDA-Public Use
  Company Number: US-PFIZER INC-2008017491

PATIENT
  Sex: Female
  Weight: 68.181 kg

DRUGS (13)
  1. DEPO-MEDROL [Suspect]
     Indication: MUSCULOSKELETAL PAIN
  2. CELEBREX [Suspect]
     Indication: JOINT INJURY
  3. ZITHROMAX [Suspect]
     Indication: BRONCHITIS
  4. ZITHROMAX [Suspect]
     Indication: MASTOID DISORDER
  5. CIPROFLOXACIN HCL [Suspect]
     Indication: BRONCHITIS
  6. DOXYCYCLINE [Suspect]
     Indication: BRONCHITIS
  7. PREDNISONE TAB [Concomitant]
  8. NAPROSYN [Concomitant]
  9. HYDROCODONE BITARTRATE + ACETAMINOPHEN [Concomitant]
  10. LYRICA [Concomitant]
  11. VITAMINS [Concomitant]
  12. OXYCODONE HCL [Concomitant]
  13. OPHTHALMOLOGICALS [Concomitant]

REACTIONS (14)
  - ARTHROPATHY [None]
  - BALANCE DISORDER [None]
  - BRONCHITIS [None]
  - EATING DISORDER [None]
  - EXOSTOSIS [None]
  - FALL [None]
  - HEADACHE [None]
  - JOINT INJURY [None]
  - MALAISE [None]
  - MASTOID DISORDER [None]
  - OSTEOARTHRITIS [None]
  - PARAESTHESIA [None]
  - RHEUMATOID ARTHRITIS [None]
  - ROTATOR CUFF SYNDROME [None]
